FAERS Safety Report 8316466-0 (Version None)
Quarter: 2012Q2

REPORT INFORMATION
  Report Type: 
  Country: None (occurrence: None)
  Receive Date: 20120425
  Receipt Date: 20120425
  Transmission Date: 20120825
  Serious: No
  Sender: FDA-Public Use
  Company Number: None

PATIENT
  Sex: Male

DRUGS (1)
  1. XYZAL [Suspect]
     Indication: RHINITIS ALLERGIC
     Dosage: 5 MG QD P.O.
     Route: 048
     Dates: start: 20120401

REACTIONS (2)
  - ECONOMIC PROBLEM [None]
  - DRUG INEFFECTIVE [None]
